FAERS Safety Report 7600182-4 (Version None)
Quarter: 2011Q3

REPORT INFORMATION
  Report Type: 
  Country: None (occurrence: None)
  Receive Date: 20110711
  Receipt Date: 20110705
  Transmission Date: 20111222
  Serious: Yes (Death, Other)
  Sender: FDA-Public Use
  Company Number: PHHY2010MX63769

PATIENT
  Sex: Female

DRUGS (2)
  1. RASILEZ [Suspect]
     Indication: HYPERTENSION
     Dosage: 300 MG, UNK
     Dates: start: 20100726
  2. IMMUNOGLOBULINS [Concomitant]
     Dosage: UNK UKN, UNK

REACTIONS (3)
  - INFARCTION [None]
  - PULMONARY OEDEMA [None]
  - OSTEOPOROSIS [None]
